FAERS Safety Report 15327898 (Version 1)
Quarter: 2018Q3

REPORT INFORMATION
  Report Type: Spontaneous
  Country: US (occurrence: US)
  Receive Date: 20180828
  Receipt Date: 20180828
  Transmission Date: 20181010
  Serious: Yes (Other)
  Sender: FDA-Public Use
  Company Number: US-ROCHE-2108862

PATIENT
  Sex: Male

DRUGS (2)
  1. ALECENSA [Suspect]
     Active Substance: ALECTINIB HYDROCHLORIDE
     Indication: NON-SMALL CELL LUNG CANCER
     Dosage: 4 FORMULATIONS IN THE MORNING AND 4 IN THE EVENING
     Route: 065
     Dates: start: 201712
  2. ALECENSA [Suspect]
     Active Substance: ALECTINIB HYDROCHLORIDE
     Dosage: DOSE DECREASED TO 2 FORMULATIONS IN THE MORNING AND 2 IN THE EVENING
     Route: 065

REACTIONS (5)
  - Myalgia [Not Recovered/Not Resolved]
  - Bradycardia [Recovered/Resolved]
  - Constipation [Recovering/Resolving]
  - Asthenia [Not Recovered/Not Resolved]
  - Fatigue [Not Recovered/Not Resolved]
